FAERS Safety Report 14632040 (Version 2)
Quarter: 2018Q1

REPORT INFORMATION
  Report Type: Spontaneous
  Country: US (occurrence: US)
  Receive Date: 20180313
  Receipt Date: 20180330
  Transmission Date: 20180509
  Serious: Yes (Other)
  Sender: FDA-Public Use
  Company Number: US-PFIZER INC-2018062991

PATIENT
  Age: 72 Year
  Sex: Female
  Weight: 62.59 kg

DRUGS (12)
  1. BONE MEAL [Concomitant]
     Indication: VITAMIN SUPPLEMENTATION
     Dosage: 2 DF, DAILY
     Route: 048
     Dates: start: 1960
  2. PROBIOTIC [Concomitant]
     Active Substance: PROBIOTICS NOS
     Indication: PROBIOTIC THERAPY
     Dosage: UNK
  3. GLUCOSAMINE + CHONDROITIN [Concomitant]
     Indication: VITAMIN SUPPLEMENTATION
     Dosage: 2 DF, DAILY
     Route: 048
     Dates: start: 1990
  4. VITAMIN C [Concomitant]
     Active Substance: ASCORBIC ACID
     Indication: VITAMIN SUPPLEMENTATION
     Dosage: 1000 MG (500MG, 2 TABLETS), DAILY
     Route: 048
     Dates: start: 2016
  5. XELJANZ [Suspect]
     Active Substance: TOFACITINIB CITRATE
     Dosage: 5 MG, 2X/DAY
     Route: 048
     Dates: start: 2016, end: 201709
  6. ARAVA [Concomitant]
     Active Substance: LEFLUNOMIDE
     Indication: RHEUMATOID ARTHRITIS
     Dosage: 10 MG, 1X/DAY
     Route: 048
     Dates: start: 2000
  7. XELJANZ [Suspect]
     Active Substance: TOFACITINIB CITRATE
     Indication: RHEUMATOID ARTHRITIS
     Dosage: 5 MG, 2X/DAY
     Route: 048
     Dates: start: 201512
  8. WELCHOL [Concomitant]
     Active Substance: COLESEVELAM HYDROCHLORIDE
     Indication: DIARRHOEA
     Dosage: 1250 MG (625MG, 2 TABLETS), DAILY
     Route: 048
     Dates: start: 2001
  9. BIOFLAVONOID [Concomitant]
     Dosage: 2 DF, DAILY
     Route: 048
     Dates: start: 2015
  10. SALSALATE. [Concomitant]
     Active Substance: SALSALATE
     Indication: RHEUMATOID ARTHRITIS
     Dosage: 1500 MG, DAILY
     Route: 048
  11. SYNTHROID [Concomitant]
     Active Substance: LEVOTHYROXINE SODIUM
     Indication: HYPOTHYROIDISM
     Dosage: 0.05MG EVERY OTHER DAY AND 0.075MG EVERY OTHER DAY
     Route: 048
     Dates: start: 1990
  12. SYNTHROID [Concomitant]
     Active Substance: LEVOTHYROXINE SODIUM
     Dosage: 0.05MG EVERY OTHER DAY AND 0.075MG EVERY OTHER DAY
     Route: 048

REACTIONS (6)
  - Fall [Unknown]
  - Hypoaesthesia [Unknown]
  - Muscle spasms [Unknown]
  - Neuralgia [Unknown]
  - Spinal disorder [Unknown]
  - Limb discomfort [Unknown]
